FAERS Safety Report 6152057-8 (Version None)
Quarter: 2009Q2

REPORT INFORMATION
  Report Type: 
  Country: None (occurrence: None)
  Receive Date: 20090410
  Receipt Date: 20090331
  Transmission Date: 20091009
  Serious: Yes (Life-Threatening)
  Sender: FDA-Public Use
  Company Number: JP-ABBOTT-08P-087-0479986-00

PATIENT
  Age: 79 Year
  Sex: Male

DRUGS (6)
  1. LEUPLIN SR FOR INJECTION 11.25 MG [Suspect]
     Indication: PROSTATE CANCER STAGE I
     Dates: start: 20050309, end: 20060112
  2. LEUPLIN SR FOR INJECTION 11.25 MG [Suspect]
     Route: 058
     Dates: start: 20060209, end: 20070927
  3. LEUPLIN SR FOR INJECTION 11.25 MG [Suspect]
     Route: 058
     Dates: start: 20080313
  4. CASODEX [Concomitant]
     Indication: PROSTATE CANCER STAGE I
     Route: 048
     Dates: end: 20060802
  5. CASODEX [Concomitant]
     Route: 048
     Dates: start: 20070705, end: 20070926
  6. NEUER [Concomitant]
     Indication: GASTRITIS PROPHYLAXIS
     Route: 048
     Dates: end: 20060802

REACTIONS (1)
  - LARGE INTESTINE CARCINOMA [None]
